FAERS Safety Report 14585399 (Version 1)
Quarter: 2018Q1

REPORT INFORMATION
  Report Type: Report from Study
  Country: ES (occurrence: ES)
  Receive Date: 20180301
  Receipt Date: 20180301
  Transmission Date: 20180509
  Serious: Yes (Life-Threatening, Hospitalization)
  Sender: FDA-Public Use
  Company Number: ES-ASTELLAS-2018US010602

PATIENT
  Age: 72 Year
  Sex: Male

DRUGS (3)
  1. BLOKIUM /00372302/ [Suspect]
     Active Substance: DICLOFENAC SODIUM
     Indication: ESSENTIAL HYPERTENSION
     Route: 048
     Dates: start: 20010327, end: 20160306
  2. ACUPREL [Concomitant]
     Indication: ESSENTIAL HYPERTENSION
     Route: 048
  3. SOLIFENACIN [Suspect]
     Active Substance: SOLIFENACIN
     Indication: URINARY INCONTINENCE
     Route: 048
     Dates: start: 20110311

REACTIONS (1)
  - Atrioventricular block complete [Recovered/Resolved with Sequelae]

NARRATIVE: CASE EVENT DATE: 20160304
